FAERS Safety Report 23996553 (Version 3)
Quarter: 2025Q1

REPORT INFORMATION
  Report Type: Spontaneous
  Country: US (occurrence: US)
  Receive Date: 20240620
  Receipt Date: 20250122
  Transmission Date: 20250408
  Serious: No
  Sender: INCYTE
  Company Number: US-INCYTE CORPORATION-2024IN006334

PATIENT

DRUGS (2)
  1. JAKAFI [Suspect]
     Active Substance: RUXOLITINIB
     Indication: Illness
     Dosage: 5 MILLIGRAM, BID
     Route: 048
  2. JAKAFI [Suspect]
     Active Substance: RUXOLITINIB
     Indication: Myeloproliferative neoplasm
     Dosage: 5 MILLIGRAM, BID
     Route: 048
     Dates: start: 2017

REACTIONS (2)
  - Off label use [Unknown]
  - Product packaging quantity issue [Unknown]
